FAERS Safety Report 7636340-2 (Version None)
Quarter: 2011Q3

REPORT INFORMATION
  Report Type: 
  Country: None (occurrence: None)
  Receive Date: 20110726
  Receipt Date: 20110706
  Transmission Date: 20111222
  Serious: Yes (Congenital Anomaly)
  Sender: FDA-Public Use
  Company Number: US-GLAXOSMITHKLINE-A0934110A

PATIENT
  Sex: Female

DRUGS (4)
  1. PRENATAL VITAMINS [Concomitant]
  2. MACROBID [Concomitant]
  3. PAXIL [Suspect]
     Indication: DEPRESSION
     Route: 064
  4. PAROXETINE HCL [Suspect]
     Indication: DEPRESSION
     Route: 064

REACTIONS (3)
  - SPINA BIFIDA [None]
  - MATERNAL EXPOSURE DURING PREGNANCY [None]
  - MENINGOMYELOCELE [None]
